FAERS Safety Report 6827553-8 (Version None)
Quarter: 2010Q3

REPORT INFORMATION
  Report Type: 
  Country: None (occurrence: None)
  Receive Date: 20100709
  Receipt Date: 20100630
  Transmission Date: 20110219
  Serious: Yes (Hospitalization)
  Sender: FDA-Public Use
  Company Number: DE-ABBOTT-10P-062-0647437-00

PATIENT
  Age: 30 Year
  Sex: Female

DRUGS (3)
  1. VALPROATE SODIUM [Suspect]
     Indication: EPILEPSY
     Route: 048
     Dates: start: 19990101
  2. ANTICHOLINERGICS [Concomitant]
     Indication: PRODUCT USED FOR UNKNOWN INDICATION
  3. DULOXETINE HYDROCHLORIDE [Concomitant]
     Indication: PRODUCT USED FOR UNKNOWN INDICATION

REACTIONS (5)
  - AMENORRHOEA [None]
  - BLOOD TESTOSTERONE INCREASED [None]
  - HIRSUTISM [None]
  - OVARIAN CYST [None]
  - POLYCYSTIC OVARIES [None]
